FAERS Safety Report 24105957 (Version 2)
Quarter: 2024Q3

REPORT INFORMATION
  Report Type: Spontaneous
  Country: FR (occurrence: FR)
  Receive Date: 20240717
  Receipt Date: 20240822
  Transmission Date: 20241017
  Serious: No
  Sender: PFIZER
  Company Number: FR-PFIZER INC-PV202400091861

PATIENT
  Age: 12 Year
  Sex: Male

DRUGS (1)
  1. NGENLA [Suspect]
     Active Substance: SOMATROGON-GHLA
     Dosage: 29 MG
     Route: 058
     Dates: start: 20240621, end: 20240621

REACTIONS (2)
  - Injection site pain [Unknown]
  - Injection site erythema [Unknown]
